FAERS Safety Report 6998121-2 (Version None)
Quarter: 2010Q3

REPORT INFORMATION
  Report Type: 
  Country: None (occurrence: None)
  Receive Date: 20100920
  Receipt Date: 20080506
  Transmission Date: 20110219
  Serious: Yes (Hospitalization, Other)
  Sender: FDA-Public Use
  Company Number: US-ASTRAZENECA-2008UW02252

PATIENT
  Age: 13784 Day
  Sex: Male
  Weight: 88.5 kg

DRUGS (21)
  1. SEROQUEL [Suspect]
     Indication: SCHIZOPHRENIA
     Dosage: VARIOUS, INCLUDING BUT NOT LIMITED TO 300 MG
     Route: 048
     Dates: start: 20020101
  2. SEROQUEL [Suspect]
     Indication: DEPRESSION
     Dosage: VARIOUS, INCLUDING BUT NOT LIMITED TO 300 MG
     Route: 048
     Dates: start: 20020101
  3. SEROQUEL [Suspect]
     Dosage: 100-300 MG
     Route: 048
     Dates: start: 20020101
  4. SEROQUEL [Suspect]
     Dosage: 100-300 MG
     Route: 048
     Dates: start: 20020101
  5. RISPERDAL [Concomitant]
     Dates: start: 20030101
  6. PROZAC [Concomitant]
     Dates: start: 20080101
  7. REMERON [Concomitant]
     Dates: start: 20030122
  8. VICODIN [Concomitant]
     Indication: PAIN
     Dosage: 5 MG EVERY 4 HOURS AND AS NEEDED
     Route: 048
     Dates: start: 20020131
  9. ATENOLOL [Concomitant]
     Dates: start: 20050729
  10. FLUOXETINE [Concomitant]
     Dates: start: 20070217
  11. METFORMIN [Concomitant]
     Dates: start: 20070217
  12. DARVOCET-N 100 [Concomitant]
     Indication: PAIN
     Dosage: EVERY 4 HOURS, AS NEEDED
     Dates: start: 20050616
  13. AMARYL [Concomitant]
     Dates: start: 20050129
  14. HYDROCHLOROTHIAZIDE [Concomitant]
     Dates: start: 20050129
  15. MOTRIN [Concomitant]
     Route: 048
     Dates: start: 20030618
  16. FLEXERIL [Concomitant]
     Route: 048
     Dates: start: 20030618
  17. ANAPROX [Concomitant]
     Dosage: 500-1100 MG
     Route: 048
     Dates: start: 20020722
  18. ALLOPURINOL [Concomitant]
     Dates: start: 20020617
  19. SODIUM BICARBONATE [Concomitant]
     Route: 048
     Dates: start: 20020617
  20. PERCOCET-N [Concomitant]
     Indication: PAIN
     Dosage: 7.5/500 EVERY 6 HOURS
     Route: 048
     Dates: start: 20020617
  21. PREDNISONE [Concomitant]
     Dosage: 10 MG, 4 TABLETS WITH TAPERING DOSE
     Dates: start: 20010719

REACTIONS (8)
  - BLOOD CHOLESTEROL INCREASED [None]
  - DIABETES MELLITUS [None]
  - ESSENTIAL HYPERTENSION [None]
  - HYPERTENSION [None]
  - PANCREATITIS [None]
  - PANCREATITIS ACUTE [None]
  - TRANSAMINASES INCREASED [None]
  - TYPE 2 DIABETES MELLITUS [None]
